FAERS Safety Report 16925275 (Version 1)
Quarter: 2019Q4

REPORT INFORMATION
  Report Type: Report from Study
  Country: PK (occurrence: PK)
  Receive Date: 20191016
  Receipt Date: 20191016
  Transmission Date: 20200122
  Serious: Yes (Death)
  Sender: FDA-Public Use
  Company Number: NVSC2019PK003618

PATIENT
  Sex: Female
  Weight: 85 kg

DRUGS (1)
  1. KISQALI [Suspect]
     Active Substance: RIBOCICLIB
     Indication: BREAST CANCER METASTATIC
     Dosage: 600 MG (200 MGX3), QD (3 TABS OD)
     Route: 048
     Dates: start: 20190529, end: 20190820

REACTIONS (1)
  - Hepatic failure [Fatal]
